FAERS Safety Report 6970386-2 (Version None)
Quarter: 2010Q3

REPORT INFORMATION
  Report Type: 
  Country: None (occurrence: None)
  Receive Date: 20100903
  Receipt Date: 20100821
  Transmission Date: 20110219
  Serious: Yes (Death, Hospitalization)
  Sender: FDA-Public Use
  Company Number: 2010AP001814

PATIENT
  Age: 34 Year
  Sex: Female

DRUGS (1)
  1. LITHIUM CARBONATE CAP [Suspect]

REACTIONS (2)
  - OVERDOSE [None]
  - THERAPEUTIC AGENT TOXICITY [None]
